FAERS Safety Report 11730967 (Version 1)
Quarter: 2015Q4

REPORT INFORMATION
  Report Type: Spontaneous
  Country: US (occurrence: US)
  Receive Date: 20151110
  Receipt Date: 20151110
  Transmission Date: 20160304
  Serious: No
  Sender: FDA-Public Use
  Company Number: US-ELI_LILLY_AND_COMPANY-US201112000346

PATIENT
  Age: 48 Year
  Sex: Female

DRUGS (2)
  1. FORTEO [Suspect]
     Active Substance: TERIPARATIDE
     Dosage: 20 UG, QD
     Route: 065
  2. FORTEO [Suspect]
     Active Substance: TERIPARATIDE
     Indication: OSTEOPOROSIS
     Dosage: 20 UG, QD
     Route: 065
     Dates: start: 20111125

REACTIONS (12)
  - Fatigue [Unknown]
  - Headache [Recovered/Resolved]
  - Nausea [Not Recovered/Not Resolved]
  - Asthenia [Unknown]
  - Flushing [Unknown]
  - Dyspepsia [Unknown]
  - Headache [Unknown]
  - Feeling hot [Unknown]
  - Decreased appetite [Unknown]
  - Vomiting [Not Recovered/Not Resolved]
  - Dizziness [Unknown]
  - Dizziness [Not Recovered/Not Resolved]

NARRATIVE: CASE EVENT DATE: 20111126
